FAERS Safety Report 4321859-2 (Version None)
Quarter: 2004Q1

REPORT INFORMATION
  Report Type: 
  Country: None (occurrence: None)
  Receive Date: 20040322
  Receipt Date: 20031121
  Transmission Date: 20041129
  Serious: No
  Sender: FDA-Public Use
  Company Number: A-US2003-03831

PATIENT
  Age: 69 Year
  Sex: Female

DRUGS (10)
  1. TRACLEER [Suspect]
     Indication: PULMONARY HYPERTENSION
     Dosage: 125 MG, BID
     Dates: start: 20030801
  2. CEFTIN [Suspect]
  3. LASIX [Concomitant]
  4. PREDNISONE [Concomitant]
  5. ATOVAQUONE [Concomitant]
  6. LANSOPRAZOLE [Concomitant]
  7. MULTIVITAMIN [Concomitant]
  8. ASTHMA INHALERS [Concomitant]
  9. AMITRIPTYLINE HCL [Concomitant]
  10. ALDACTONE [Concomitant]

REACTIONS (1)
  - TINNITUS [None]
